FAERS Safety Report 14481132 (Version 1)
Quarter: 2018Q1

REPORT INFORMATION
  Report Type: Spontaneous
  Country: US (occurrence: US)
  Receive Date: 20180202
  Receipt Date: 20180202
  Transmission Date: 20180509
  Serious: No
  Sender: FDA-Public Use
  Company Number: US-GLAXOSMITHKLINE-US2018014484

PATIENT

DRUGS (1)
  1. NICODERM CQ [Suspect]
     Active Substance: NICOTINE
     Indication: SMOKING CESSATION THERAPY
     Dosage: 21 MG, UNK
     Dates: start: 20180123

REACTIONS (5)
  - Nausea [Unknown]
  - Abnormal dreams [Unknown]
  - Malaise [Unknown]
  - Poor quality sleep [Unknown]
  - Drug intolerance [Unknown]

NARRATIVE: CASE EVENT DATE: 20180123
